FAERS Safety Report 5230560-2 (Version None)
Quarter: 2007Q1

REPORT INFORMATION
  Report Type: 
  Country: None (occurrence: None)
  Receive Date: 20070206
  Receipt Date: 20070130
  Transmission Date: 20070707
  Serious: Yes (Other)
  Sender: FDA-Public Use
  Company Number: NL-GLAXOSMITHKLINE-B0457061A

PATIENT
  Age: 44 Year
  Sex: Female
  Weight: 75 kg

DRUGS (1)
  1. AUGMENTIN '125' [Suspect]
     Indication: OSTEOMYELITIS
     Route: 048
     Dates: start: 20061205

REACTIONS (1)
  - VISUAL ACUITY REDUCED [None]
